FAERS Safety Report 9464926 (Version 4)
Quarter: 2015Q1

REPORT INFORMATION
  Report Type: Spontaneous
  Country: US (occurrence: US)
  Receive Date: 20130819
  Receipt Date: 20150121
  Transmission Date: 20150721
  Serious: Yes (Death, Hospitalization)
  Sender: FDA-Public Use
  Company Number: US-BRISTOL-MYERS SQUIBB COMPANY-19182161

PATIENT
  Age: 59 Year
  Sex: Female

DRUGS (18)
  1. DILAUDID [Concomitant]
     Active Substance: HYDROMORPHONE HYDROCHLORIDE
     Dosage: .5 MG, UNK
  2. LEVEMIR [Concomitant]
     Active Substance: INSULIN DETEMIR
     Dosage: 1DF: 15 UNITS AT NIGHT
  3. TRICOR [Concomitant]
     Active Substance: FENOFIBRATE
     Dosage: 145 MG, QD
  4. BUPROPION [Concomitant]
     Active Substance: BUPROPION
     Dosage: 150 MG, QD
  5. LOVASTATIN. [Concomitant]
     Active Substance: LOVASTATIN
     Dosage: 40 MG, QD
  6. METHADONE [Concomitant]
     Active Substance: METHADONE HYDROCHLORIDE
     Dosage: 10 MG, INTERMITTENT
     Route: 048
  7. CHOLESTYRAMINE. [Concomitant]
     Active Substance: CHOLESTYRAMINE
     Dosage: UNK UNK, QD
  8. METFORMIN HYDROCHLORIDE. [Concomitant]
     Active Substance: METFORMIN HYDROCHLORIDE
  9. LEVOTHYROXINE [Concomitant]
     Active Substance: LEVOTHYROXINE
     Dosage: 50 ?G, QD
  10. INSULIN [Concomitant]
     Active Substance: INSULIN NOS
  11. MULTI VITAMIN [Concomitant]
     Active Substance: VITAMINS
  12. SERTRALINE [Concomitant]
     Active Substance: SERTRALINE HYDROCHLORIDE
     Dosage: 100 MG, QD
  13. NAPROXEN. [Concomitant]
     Active Substance: NAPROXEN
  14. RAMIPRIL. [Concomitant]
     Active Substance: RAMIPRIL
  15. BYETTA [Suspect]
     Active Substance: EXENATIDE
     Indication: TYPE 2 DIABETES MELLITUS
     Dosage: UNK
     Route: 065
     Dates: start: 20070307, end: 20091122
  16. FISH OIL [Concomitant]
     Active Substance: FISH OIL
     Dosage: UNK UNK, BID
  17. TRAVATAN [Concomitant]
     Active Substance: TRAVOPROST
     Dosage: 1 GTT, UNK
     Route: 047
  18. NOVOLOG [Concomitant]
     Active Substance: INSULIN ASPART

REACTIONS (1)
  - Pancreatic carcinoma metastatic [Fatal]

NARRATIVE: CASE EVENT DATE: 20110812
